FAERS Safety Report 7819229-5 (Version None)
Quarter: 2011Q4

REPORT INFORMATION
  Report Type: 
  Country: None (occurrence: None)
  Receive Date: 20111018
  Receipt Date: 20111007
  Transmission Date: 20120403
  Serious: Yes (Other)
  Sender: FDA-Public Use
  Company Number: BR-AMGEN-BRASP2011052697

PATIENT
  Age: 55 Year
  Sex: Female
  Weight: 96 kg

DRUGS (3)
  1. SIMVASTATIN [Concomitant]
     Indication: BLOOD CHOLESTEROL ABNORMAL
     Dosage: UNKNOWN DOSE, 1X/DAY
     Dates: start: 20100101
  2. ETODOLAC KN [Concomitant]
     Indication: MUSCULOSKELETAL PAIN
     Dosage: UNK UNK, QD
     Dates: start: 20110201
  3. ENBREL [Suspect]
     Indication: PRODUCT USED FOR UNKNOWN INDICATION
     Dosage: 50 MG, ONE APPLICATION WEEKLY
     Route: 058
     Dates: start: 20110701

REACTIONS (4)
  - INJECTION SITE PRURITUS [None]
  - INJECTION SITE ERYTHEMA [None]
  - INJECTION SITE PAIN [None]
  - GLUCOSE TOLERANCE IMPAIRED [None]
